FAERS Safety Report 5203628-4 (Version None)
Quarter: 2007Q1

REPORT INFORMATION
  Report Type: 
  Country: None (occurrence: None)
  Receive Date: 20070110
  Receipt Date: 20070108
  Transmission Date: 20070707
  Serious: Yes (Other)
  Sender: FDA-Public Use
  Company Number: 2007UW00343

PATIENT
  Age: 60 Year
  Sex: Female

DRUGS (4)
  1. ARIMIDEX [Suspect]
     Indication: BREAST CANCER
     Route: 048
     Dates: start: 20051001
  2. SYNTHROID [Concomitant]
  3. COUMADIN [Concomitant]
  4. ARTHRITIS MEDICATION [Concomitant]

REACTIONS (2)
  - METASTASES TO LUNG [None]
  - NON-SMALL CELL LUNG CANCER [None]
